FAERS Safety Report 8915286 (Version 5)
Quarter: 2013Q4

REPORT INFORMATION
  Report Type: Report from Study
  Country: US (occurrence: US)
  Receive Date: 20121118
  Receipt Date: 20131112
  Transmission Date: 20140711
  Serious: Yes (Other)
  Sender: FDA-Public Use
  Company Number: US-BIOGENIDEC-2012BI053447

PATIENT
  Age: 52 Year
  Sex: Male

DRUGS (4)
  1. TYSABRI [Suspect]
     Indication: CROHN^S DISEASE
     Route: 042
     Dates: start: 20110523, end: 20110815
  2. STELARA [Concomitant]
     Indication: CROHN^S DISEASE
     Route: 058
     Dates: start: 20111221
  3. OXYCODONE [Concomitant]
     Indication: PAIN
     Route: 048
     Dates: start: 201211
  4. LOMOTIL [Concomitant]
     Indication: CROHN^S DISEASE
     Route: 048
     Dates: start: 2012

REACTIONS (1)
  - Squamous cell carcinoma of skin [Recovered/Resolved]
